FAERS Safety Report 25373649 (Version 12)
Quarter: 2025Q4

REPORT INFORMATION
  Report Type: Report from Study
  Country: KR (occurrence: KR)
  Receive Date: 20250529
  Receipt Date: 20251201
  Transmission Date: 20260118
  Serious: Yes (Hospitalization, Other)
  Sender: JOHNSON AND JOHNSON
  Company Number: KR-JNJFOC-20220228273

PATIENT
  Age: 47 Year
  Sex: Male
  Weight: 84 kg

DRUGS (10)
  1. MACITENTAN [Suspect]
     Active Substance: MACITENTAN
     Indication: Pulmonary arterial hypertension
     Route: 048
     Dates: start: 20220128
  2. SELEXIPAG [Suspect]
     Active Substance: SELEXIPAG
     Indication: Pulmonary arterial hypertension
     Route: 048
     Dates: start: 20221205
  3. SELEXIPAG [Suspect]
     Active Substance: SELEXIPAG
     Route: 048
  4. SELEXIPAG [Suspect]
     Active Substance: SELEXIPAG
     Route: 048
  5. SELEXIPAG [Suspect]
     Active Substance: SELEXIPAG
     Route: 048
  6. SELEXIPAG [Suspect]
     Active Substance: SELEXIPAG
     Route: 048
  7. SELEXIPAG [Suspect]
     Active Substance: SELEXIPAG
     Route: 048
  8. SELEXIPAG [Suspect]
     Active Substance: SELEXIPAG
     Dosage: 800MCG IN THE MORNING AND 400MCG IN THE EVENING
     Route: 048
  9. SELEXIPAG [Suspect]
     Active Substance: SELEXIPAG
     Dosage: 800MCG IN THE MORNING AND EVENING
     Route: 048
  10. ASTERAN [Concomitant]
     Indication: Product used for unknown indication

REACTIONS (55)
  - Hospitalisation [Unknown]
  - Asphyxia [Unknown]
  - Pulmonary arterial pressure increased [Recovering/Resolving]
  - Oxygen saturation decreased [Not Recovered/Not Resolved]
  - General physical health deterioration [Recovering/Resolving]
  - Dyspnoea [Recovering/Resolving]
  - Chest discomfort [Not Recovered/Not Resolved]
  - Pain in extremity [Unknown]
  - Nasopharyngitis [Recovering/Resolving]
  - Skin discolouration [Not Recovered/Not Resolved]
  - Dermatitis [Not Recovered/Not Resolved]
  - Fatigue [Recovering/Resolving]
  - Headache [Not Recovered/Not Resolved]
  - Dyspepsia [Recovering/Resolving]
  - Dyspepsia [Recovered/Resolved]
  - Hepatic enzyme increased [Not Recovered/Not Resolved]
  - Diarrhoea [Not Recovered/Not Resolved]
  - Decreased appetite [Unknown]
  - Skin discolouration [Recovered/Resolved]
  - Nail disorder [Unknown]
  - Nausea [Recovered/Resolved]
  - Pyrexia [Recovered/Resolved]
  - Oedema [Recovered/Resolved]
  - Skin disorder [Unknown]
  - Jaundice [Not Recovered/Not Resolved]
  - Pain [Not Recovered/Not Resolved]
  - Productive cough [Recovering/Resolving]
  - Pain in jaw [Unknown]
  - Cardiomegaly [Unknown]
  - Middle insomnia [Unknown]
  - Depression [Unknown]
  - Arthralgia [Not Recovered/Not Resolved]
  - Weight decreased [Unknown]
  - Renal disorder [Unknown]
  - Heart rate decreased [Unknown]
  - Tooth disorder [Unknown]
  - Eructation [Recovering/Resolving]
  - Discomfort [Unknown]
  - Asthenia [Unknown]
  - Abdominal pain upper [Unknown]
  - Arthralgia [Unknown]
  - Cough [Recovered/Resolved]
  - Oral herpes [Unknown]
  - Thermal burn [Unknown]
  - Snoring [Recovering/Resolving]
  - Blood pressure decreased [Unknown]
  - Weight decreased [Not Recovered/Not Resolved]
  - Blood pressure increased [Unknown]
  - Peripheral swelling [Not Recovered/Not Resolved]
  - Insomnia [Recovering/Resolving]
  - Arthralgia [Recovering/Resolving]
  - Dyspnoea exertional [Not Recovered/Not Resolved]
  - Peripheral coldness [Unknown]
  - Hypoaesthesia [Not Recovered/Not Resolved]
  - Retching [Unknown]

NARRATIVE: CASE EVENT DATE: 20240101
